FAERS Safety Report 8004825-5 (Version None)
Quarter: 2011Q4

REPORT INFORMATION
  Report Type: 
  Country: None (occurrence: None)
  Receive Date: 20111223
  Receipt Date: 20111213
  Transmission Date: 20120403
  Serious: Yes (Other)
  Sender: FDA-Public Use
  Company Number: JP-BRISTOL-MYERS SQUIBB COMPANY-16230385

PATIENT
  Age: 82 Year
  Sex: Female
  Weight: 38 kg

DRUGS (10)
  1. BEVACIZUMAB [Concomitant]
     Indication: METASTASES TO LYMPH NODES
  2. LEUCOVORIN CALCIUM [Concomitant]
     Indication: METASTASES TO LYMPH NODES
  3. FLUOROURACIL [Concomitant]
     Indication: RECTAL CANCER METASTATIC
     Dosage: 13 COURSES 400MG/M2 1 IN 14 D.  300MG/M2
  4. OXALIPLATIN [Concomitant]
     Indication: RECTAL CANCER METASTATIC
     Dosage: COURSE:13
  5. FLUOROURACIL [Concomitant]
     Indication: METASTASES TO LYMPH NODES
     Dosage: 13 COURSES 400MG/M2 1 IN 14 D.  300MG/M2
  6. LEUCOVORIN CALCIUM [Concomitant]
     Indication: RECTAL CANCER METASTATIC
  7. OXALIPLATIN [Concomitant]
     Indication: METASTASES TO LYMPH NODES
     Dosage: COURSE:13
  8. IRINOTECAN HCL [Concomitant]
     Indication: METASTASES TO LYMPH NODES
     Dosage: 120MG/M2
  9. ERBITUX [Suspect]
     Indication: RECTAL CANCER METASTATIC
     Dosage: 250MG/M2
  10. TEGAFUR [Concomitant]
     Indication: RECTAL CANCER
     Dosage: UFT 300MG/BODY/DAY
     Route: 048

REACTIONS (4)
  - DRY SKIN [None]
  - PARONYCHIA [None]
  - DERMATITIS ACNEIFORM [None]
  - SKIN ULCER [None]
